FAERS Safety Report 9075474 (Version 3)
Quarter: 2013Q4

REPORT INFORMATION
  Report Type: Report from Study
  Country: IE (occurrence: IE)
  Receive Date: 20130201
  Receipt Date: 20131111
  Transmission Date: 20140711
  Serious: Yes (Other)
  Sender: FDA-Public Use
  Company Number: IE-US-EMD SERONO, INC.-7189795

PATIENT
  Age: 41 Year
  Sex: Female
  Weight: 70 kg

DRUGS (3)
  1. SAIZEN [Suspect]
     Indication: PITUITARY TUMOUR
     Route: 058
     Dates: start: 20111220
  2. HYDROCORTISONE [Concomitant]
     Indication: HORMONE REPLACEMENT THERAPY
     Route: 048
     Dates: start: 20110603
  3. DROSPIRENONE [Concomitant]
     Indication: CONTRACEPTION
     Route: 048
     Dates: start: 20090924

REACTIONS (6)
  - Urinary tract infection [Recovered/Resolved]
  - Tonsillitis [Recovered/Resolved]
  - Sinusitis [Recovered/Resolved]
  - Oropharyngeal pain [Recovered/Resolved]
  - Cough [Recovered/Resolved]
  - Throat lesion [Recovered/Resolved]
